FAERS Safety Report 23361201 (Version 5)
Quarter: 2024Q4

REPORT INFORMATION
  Report Type: Report from Study
  Country: US (occurrence: US)
  Receive Date: 20240103
  Receipt Date: 20241223
  Transmission Date: 20250115
  Serious: Yes (Hospitalization, Other)
  Sender: TAKEDA
  Company Number: US-TAKEDA-2022TUS044700

PATIENT
  Age: 3 Year
  Sex: Male

DRUGS (4)
  1. ADVATE [Suspect]
     Active Substance: ANTIHEMOPHILIC FACTOR, HUMAN RECOMBINANT
     Indication: Prophylaxis
     Dosage: 610 INTERNATIONAL UNIT
  2. ADVATE [Suspect]
     Active Substance: ANTIHEMOPHILIC FACTOR, HUMAN RECOMBINANT
     Dosage: 750 INTERNATIONAL UNIT
  3. ADVATE [Suspect]
     Active Substance: ANTIHEMOPHILIC FACTOR, HUMAN RECOMBINANT
     Dosage: 750 INTERNATIONAL UNIT
  4. ADVATE [Suspect]
     Active Substance: ANTIHEMOPHILIC FACTOR, HUMAN RECOMBINANT
     Dosage: 825 INTERNATIONAL UNIT

REACTIONS (10)
  - Circumcised [Unknown]
  - Mouth haemorrhage [Unknown]
  - Post procedural complication [Unknown]
  - Post procedural haemorrhage [Recovered/Resolved]
  - Haematoma [Unknown]
  - Infusion site extravasation [Unknown]
  - Haemoglobin decreased [Unknown]
  - Tongue biting [Unknown]
  - Incorrect dose administered [Unknown]
  - Strabismus [Unknown]

NARRATIVE: CASE EVENT DATE: 20220701
